FAERS Safety Report 7501968-7 (Version None)
Quarter: 2011Q2

REPORT INFORMATION
  Report Type: 
  Country: None (occurrence: None)
  Receive Date: 20110525
  Receipt Date: 20110504
  Transmission Date: 20111010
  Serious: No
  Sender: FDA-Public Use
  Company Number: US-B.I. PHARMACEUTICALS,INC./RIDGEFIELD-2011-BP-07534BP

PATIENT
  Sex: Female

DRUGS (6)
  1. FUROSEMIDE [Concomitant]
  2. LEVOTHYROXINE SODIUM [Concomitant]
  3. METHYLDOPA [Concomitant]
  4. PRADAXA [Suspect]
     Indication: ANTICOAGULANT THERAPY
  5. CARVEDILOL [Concomitant]
  6. SINGULAIR [Concomitant]

REACTIONS (4)
  - ANXIETY [None]
  - CHEST PAIN [None]
  - ABDOMINAL DISCOMFORT [None]
  - ASTHENIA [None]
